FAERS Safety Report 8988540 (Version 1)
Quarter: 2012Q4

REPORT INFORMATION
  Report Type: Spontaneous
  Country: GB (occurrence: None)
  Receive Date: 20121218
  Receipt Date: 20121218
  Transmission Date: 20130627
  Serious: Yes (Hospitalization)
  Sender: FDA-Public Use
  Company Number: AUR-APL-2012-05268

PATIENT
  Age: 63 Year
  Sex: Male

DRUGS (8)
  1. CITALOPRAM (CITALOPRAM) [Suspect]
     Indication: PANIC DISORDER
     Route: 048
     Dates: start: 20121109, end: 20121120
  2. QUETIAPINE [Suspect]
     Indication: AGITATION
     Route: 048
     Dates: start: 20120910, end: 20121120
  3. QUETIAPINE [Suspect]
     Indication: HALLUCINATION
     Route: 048
     Dates: start: 20120910, end: 20121120
  4. CO-CARELDOPA (SINEMET) [Concomitant]
  5. MADOPAR [Concomitant]
  6. NOVOMIX (INSULIN ASPART) [Concomitant]
  7. SIMVASTATIN [Concomitant]
  8. STALEVO [Concomitant]

REACTIONS (6)
  - Hyponatraemia [None]
  - Fall [None]
  - Orthostatic hypotension [None]
  - Incorrect dose administered [None]
  - Back pain [None]
  - Hallucination [None]
